FAERS Safety Report 9272374 (Version 1)
Quarter: 2013Q2

REPORT INFORMATION
  Report Type: Spontaneous
  Country: US (occurrence: US)
  Receive Date: 20130506
  Receipt Date: 20130506
  Transmission Date: 20140414
  Serious: No
  Sender: FDA-Public Use
  Company Number: US-ASTRAZENECA-2012SE94550

PATIENT
  Sex: Female

DRUGS (4)
  1. PRILOSEC OTC [Suspect]
     Route: 048
  2. ZANTAC [Suspect]
     Route: 065
  3. PREMARIN [Concomitant]
  4. SYNTHROID [Concomitant]

REACTIONS (4)
  - Throat irritation [Recovered/Resolved]
  - Oral discomfort [Recovered/Resolved]
  - Dyspepsia [Recovered/Resolved]
  - Inappropriate schedule of drug administration [Unknown]
